FAERS Safety Report 9892259 (Version 2)
Quarter: 2014Q1

REPORT INFORMATION
  Report Type: Spontaneous
  Country: US (occurrence: US)
  Receive Date: 20140212
  Receipt Date: 20140312
  Transmission Date: 20141002
  Serious: Yes (Other)
  Sender: FDA-Public Use
  Company Number: CHPA2014US002386

PATIENT
  Age: 64 Year
  Sex: Female

DRUGS (7)
  1. EXCEDRIN TENSION HEADACHE [Suspect]
     Indication: CLUSTER HEADACHE
     Dosage: 2 DF, PRN
     Route: 048
  2. EXCEDRIN TENSION HEADACHE [Suspect]
     Indication: TENSION HEADACHE
  3. EXCEDRIN MIGRAINE [Suspect]
     Indication: TENSION HEADACHE
     Dosage: 1-2 DF, UNK
  4. EXCEDRIN MIGRAINE [Suspect]
     Indication: PROPHYLAXIS
  5. EXCEDRIN MIGRAINE [Suspect]
     Indication: OFF LABEL USE
  6. SYNTHROID [Concomitant]
     Dosage: 20 MG, QD
  7. NEXIUM//ESOMEPRAZOLE SODIUM [Concomitant]
     Indication: GASTROOESOPHAGEAL REFLUX DISEASE
     Dosage: 20 MG, QD

REACTIONS (5)
  - Thyroid cancer stage III [Unknown]
  - Therapeutic response unexpected [Unknown]
  - Disease recurrence [Not Recovered/Not Resolved]
  - Feeling abnormal [Not Recovered/Not Resolved]
  - Underdose [Unknown]
